FAERS Safety Report 7731101-8 (Version None)
Quarter: 2011Q3

REPORT INFORMATION
  Report Type: 
  Country: None (occurrence: None)
  Receive Date: 20110906
  Receipt Date: 20110906
  Transmission Date: 20111222
  Serious: Yes (Hospitalization)
  Sender: FDA-Public Use
  Company Number: None

PATIENT
  Age: 3 Year
  Sex: Male
  Weight: 15.422 kg

DRUGS (2)
  1. ADRENALIN IN OIL INJ [Concomitant]
  2. CEFDINIR [Suspect]
     Indication: LABYRINTHITIS
     Dosage: 5 CC'S
     Route: 048
     Dates: start: 20110824, end: 20110830

REACTIONS (3)
  - URTICARIA [None]
  - DYSPNOEA [None]
  - RASH [None]
